FAERS Safety Report 9847402 (Version 2)
Quarter: 2014Q1

REPORT INFORMATION
  Report Type: Spontaneous
  Country: LB (occurrence: LB)
  Receive Date: 20140127
  Receipt Date: 20140127
  Transmission Date: 20141002
  Serious: Yes (Life-Threatening, Hospitalization, Other)
  Sender: FDA-Public Use
  Company Number: LB-ABBVIE-13X-093-1106215-00

PATIENT
  Age: 29 Year
  Sex: Female

DRUGS (2)
  1. DEPAKINE CHRONO [Suspect]
     Indication: EPILEPSY
     Dosage: 1000 MILLIGRAM(S) ;DAILY; EXTENDED RELEASE
     Route: 048
     Dates: start: 1995
  2. DEPAKINE CHRONO [Suspect]
     Route: 048

REACTIONS (2)
  - Abortion induced [Unknown]
  - Leukaemia [Not Recovered/Not Resolved]
